FAERS Safety Report 5398495-2 (Version None)
Quarter: 2007Q3

REPORT INFORMATION
  Report Type: 
  Country: None (occurrence: None)
  Receive Date: 20070726
  Receipt Date: 20070124
  Transmission Date: 20080115
  Serious: No
  Sender: FDA-Public Use
  Company Number: US-AMGEN-KDL209439

PATIENT
  Sex: Female

DRUGS (4)
  1. PROCRIT [Suspect]
     Indication: RENAL FAILURE CHRONIC
     Route: 058
     Dates: start: 20060621
  2. TACROLIMUS [Concomitant]
     Dates: start: 19991221
  3. ROCALTROL [Concomitant]
  4. MYCOPHENOLATE MOFETIL [Concomitant]
     Dates: start: 19991221

REACTIONS (2)
  - RETICULOCYTE PERCENTAGE INCREASED [None]
  - THERAPEUTIC RESPONSE DECREASED [None]
